FAERS Safety Report 17109001 (Version 1)
Quarter: 2019Q4

REPORT INFORMATION
  Report Type: Spontaneous
  Country: US (occurrence: US)
  Receive Date: 20191203
  Receipt Date: 20191203
  Transmission Date: 20200122
  Serious: Yes (Hospitalization)
  Sender: FDA-Public Use
  Company Number: US-IBSA PHARMA-TIR-2019-0885

PATIENT
  Age: 57 Year
  Sex: Female

DRUGS (2)
  1. TIROSINT [Suspect]
     Active Substance: LEVOTHYROXINE SODIUM
     Indication: AUTOIMMUNE THYROIDITIS
     Dosage: 25MCG DAILY AND AN ADDITIONAL 13MCG ON SUNDAYS
     Route: 048
     Dates: start: 20161111
  2. TIROSINT [Suspect]
     Active Substance: LEVOTHYROXINE SODIUM
     Indication: AUTOIMMUNE THYROIDITIS
     Dosage: 25MCG DAILY AND AN ADDITIONAL 13MCG ON SUNDAYS
     Route: 048
     Dates: start: 20161111

REACTIONS (3)
  - Pain [Unknown]
  - Diverticulitis [Unknown]
  - Scar [Unknown]

NARRATIVE: CASE EVENT DATE: 20190416
